FAERS Safety Report 4514310-0 (Version None)
Quarter: 2004Q4

REPORT INFORMATION
  Report Type: 
  Country: None (occurrence: None)
  Receive Date: 20041124
  Receipt Date: 20041110
  Transmission Date: 20050328
  Serious: Yes (Death, Hospitalization)
  Sender: FDA-Public Use
  Company Number: US_0409105327

PATIENT
  Age: 69 Year
  Sex: Male
  Weight: 66 kg

DRUGS (12)
  1. GEMZAR [Suspect]
     Indication: BLADDER CANCER
     Dosage: 2300 MG OTHER
     Route: 050
     Dates: start: 20030804
  2. CISPLATIN [Concomitant]
  3. CAPTOPRIL [Concomitant]
  4. PLASIL (METOCLOPRAMIDE HYDROCHLORIDE) [Concomitant]
  5. KYTRIL [Concomitant]
  6. CIPROFLOXACIN [Concomitant]
  7. RANITIDINE [Concomitant]
  8. ALUMINUM HYDROXIDE GEL [Concomitant]
  9. TYLEX [Concomitant]
  10. BIOFENAC (ACECLOFENAC) [Concomitant]
  11. BUSCOPAN (HYOSCINE BUTYLBROMIDE) [Concomitant]
  12. DIGESTIL [Concomitant]

REACTIONS (14)
  - ABDOMINAL DISTENSION [None]
  - ABDOMINAL PAIN [None]
  - ANAEMIA [None]
  - DEHYDRATION [None]
  - DIARRHOEA HAEMORRHAGIC [None]
  - FLATULENCE [None]
  - HYPOTENSION [None]
  - INTESTINAL DILATATION [None]
  - MUCOSAL INFLAMMATION [None]
  - NAUSEA [None]
  - PALLOR [None]
  - PROSTRATION [None]
  - URINARY INCONTINENCE [None]
  - VOMITING [None]
